FAERS Safety Report 9547068 (Version 1)
Quarter: 2013Q3

REPORT INFORMATION
  Report Type: Spontaneous
  Country: US (occurrence: None)
  Receive Date: 20130920
  Receipt Date: 20130920
  Transmission Date: 20140515
  Serious: Yes (Other)
  Sender: FDA-Public Use
  Company Number: 2013-US-000160

PATIENT
  Age: 40 Year
  Sex: Male
  Weight: 88 kg

DRUGS (5)
  1. XYREM [Suspect]
     Indication: NARCOLEPSY
     Route: 048
     Dates: start: 20021017, end: 200301
  2. XYREM [Suspect]
     Indication: CATAPLEXY
     Route: 048
     Dates: start: 20021017, end: 200301
  3. CHLORTHALIDONE [Suspect]
     Indication: HYPERTENSION
  4. LISINOPRIL AND HYDROCHLOROTHIAZIDE [Suspect]
  5. ADDERALL (AMFETAMINE ASPARTATE, AMFETAMINE SULFATE, DEXAMFETAMINE SACCHARATE, DEXAMFETAMINE SULFATE) [Concomitant]

REACTIONS (5)
  - Pancreatitis [None]
  - Spinal laminectomy [None]
  - Spinal fusion surgery [None]
  - Hypokalaemia [None]
  - Hypertension [None]
